FAERS Safety Report 5011810-4 (Version None)
Quarter: 2006Q2

REPORT INFORMATION
  Report Type: 
  Country: None (occurrence: None)
  Receive Date: 20060524
  Receipt Date: 20060524
  Transmission Date: 20061013
  Serious: Yes (Hospitalization)
  Sender: FDA-Public Use
  Company Number: None

PATIENT
  Age: 74 Year
  Sex: Male
  Weight: 98 kg

DRUGS (4)
  1. PLAVIX [Suspect]
     Dosage: 75 MG Q DAY PO
     Route: 048
  2. ETODOLAC [Suspect]
     Dosage: 500 MG BID PO
     Route: 048
  3. CARBOPLATIN [Concomitant]
  4. ETOPOSIDE [Concomitant]

REACTIONS (4)
  - ANAEMIA [None]
  - GASTRITIS [None]
  - OESOPHAGITIS [None]
  - WHITE BLOOD CELL COUNT DECREASED [None]
